FAERS Safety Report 7127531-8 (Version None)
Quarter: 2010Q4

REPORT INFORMATION
  Report Type: 
  Country: None (occurrence: None)
  Receive Date: 20101129
  Receipt Date: 20100708
  Transmission Date: 20110411
  Serious: Yes (Other)
  Sender: FDA-Public Use
  Company Number: US-PFIZER INC-2010086171

PATIENT
  Sex: Male
  Weight: 65.76 kg

DRUGS (2)
  1. VIAGRA [Suspect]
     Dosage: UNK
     Dates: start: 20100707
  2. VICODIN [Concomitant]
     Dosage: UNK

REACTIONS (4)
  - ERECTION INCREASED [None]
  - GENITAL BURNING SENSATION [None]
  - HEADACHE [None]
  - PARAESTHESIA OF GENITAL MALE [None]
